FAERS Safety Report 14094425 (Version 1)
Quarter: 2017Q4

REPORT INFORMATION
  Report Type: Spontaneous
  Country: US (occurrence: US)
  Receive Date: 20171016
  Receipt Date: 20171016
  Transmission Date: 20180321
  Serious: No
  Sender: FDA-Public Use
  Company Number: US-AMGEN-USASP2017038162

PATIENT
  Sex: Female

DRUGS (2)
  1. PROLIA [Suspect]
     Active Substance: DENOSUMAB
     Indication: OSTEOPOROSIS POSTMENOPAUSAL
     Dosage: 60 MG, Q6MO
     Route: 065
     Dates: start: 20170202
  2. PROLIA [Suspect]
     Active Substance: DENOSUMAB

REACTIONS (19)
  - Pain [Unknown]
  - Abdominal distension [Recovered/Resolved]
  - Arthralgia [Recovered/Resolved]
  - Back pain [Recovered/Resolved]
  - Dizziness [Unknown]
  - Myalgia [Unknown]
  - Rash [Recovered/Resolved]
  - Joint swelling [Recovered/Resolved]
  - Injection site pain [Unknown]
  - Joint crepitation [Unknown]
  - Nervousness [Unknown]
  - Abdominal discomfort [Unknown]
  - Weight increased [Unknown]
  - Headache [Recovered/Resolved]
  - Musculoskeletal pain [Recovered/Resolved]
  - Heart rate increased [Unknown]
  - Somnolence [Unknown]
  - Bone pain [Unknown]
  - Pain in extremity [Recovered/Resolved]

NARRATIVE: CASE EVENT DATE: 20170203
